FAERS Safety Report 5688094-7 (Version None)
Quarter: 2008Q1

REPORT INFORMATION
  Report Type: 
  Country: None (occurrence: None)
  Receive Date: 20080327
  Receipt Date: 20080310
  Transmission Date: 20080703
  Serious: Yes (Other)
  Sender: FDA-Public Use
  Company Number: DSA_62011_2008

PATIENT
  Sex: Female
  Weight: 13.6079 kg

DRUGS (1)
  1. DIASTAT [Suspect]
     Indication: CONVULSION
     Dosage: (5 MG PRN RECTAL)
     Route: 054
     Dates: start: 20080201

REACTIONS (2)
  - CONVULSION [None]
  - DRUG INEFFECTIVE [None]
